FAERS Safety Report 7486145-0 (Version None)
Quarter: 2011Q2

REPORT INFORMATION
  Report Type: 
  Country: None (occurrence: None)
  Receive Date: 20110517
  Receipt Date: 20110508
  Transmission Date: 20111010
  Serious: Yes (Death, Other)
  Sender: FDA-Public Use
  Company Number: CA-NAPPMUNDI-CAN-2011-0001701

PATIENT
  Age: 23 Year
  Sex: Male

DRUGS (4)
  1. ALCOHOL [Suspect]
     Indication: PRODUCT USED FOR UNKNOWN INDICATION
  2. HEROIN [Suspect]
     Indication: PRODUCT USED FOR UNKNOWN INDICATION
  3. MARIJUANA [Suspect]
     Indication: PRODUCT USED FOR UNKNOWN INDICATION
  4. OXYCONTIN [Suspect]
     Indication: PRODUCT USED FOR UNKNOWN INDICATION
     Dosage: UNK

REACTIONS (10)
  - INSOMNIA [None]
  - PERSONALITY CHANGE [None]
  - ANGER [None]
  - HYPERHIDROSIS [None]
  - AGGRESSION [None]
  - DRUG DEPENDENCE [None]
  - OVERDOSE [None]
  - SUICIDAL IDEATION [None]
  - CYANOSIS [None]
  - SUBSTANCE ABUSE [None]
